FAERS Safety Report 4518162-4 (Version None)
Quarter: 2004Q4

REPORT INFORMATION
  Report Type: 
  Country: None (occurrence: None)
  Receive Date: 20041130
  Receipt Date: 20041116
  Transmission Date: 20050328
  Serious: Yes (Death, Hospitalization)
  Sender: FDA-Public Use
  Company Number: A01200405843

PATIENT
  Age: 48 Year
  Sex: Male
  Weight: 71.9 kg

DRUGS (11)
  1. AMBIEN [Suspect]
  2. ATIVAN [Suspect]
  3. COMPAZINE - PROCHLORPERAZINE EDISYLATE - DOSE: NI [Suspect]
  4. OXYCODONE - DOSE : NI [Suspect]
  5. OXYCONTIN [Suspect]
  6. LOPERAMIDE HCL [Concomitant]
  7. ONDANSETRON HCL [Concomitant]
  8. FLUOROURACIL [Concomitant]
  9. LEUCOVORIN [Concomitant]
  10. FLAVOPIRIDOL [Concomitant]
  11. PANTOPRAZOLE SODIUM [Concomitant]

REACTIONS (19)
  - ABDOMINAL DISTENSION [None]
  - CARDIAC ARREST [None]
  - CIRCULATORY COLLAPSE [None]
  - COLON CANCER [None]
  - DEHYDRATION [None]
  - DIARRHOEA [None]
  - HAEMOGLOBIN DECREASED [None]
  - HYPONATRAEMIA [None]
  - HYPOTENSION [None]
  - METASTASES TO PERITONEUM [None]
  - NAUSEA [None]
  - PITTING OEDEMA [None]
  - PLEURAL EFFUSION [None]
  - PNEUMONIA ASPIRATION [None]
  - PNEUMONITIS [None]
  - PULSE ABSENT [None]
  - SIGNET-RING CELL CARCINOMA [None]
  - TACHYCARDIA [None]
  - VOMITING [None]
